FAERS Safety Report 4867205-7 (Version None)
Quarter: 2005Q4

REPORT INFORMATION
  Report Type: 
  Country: None (occurrence: None)
  Receive Date: 20051227
  Receipt Date: 20051227
  Transmission Date: 20060501
  Serious: Yes (Hospitalization)
  Sender: FDA-Public Use
  Company Number: None

PATIENT
  Age: 36 Year
  Sex: Male
  Weight: 80.3 kg

DRUGS (9)
  1. ZOLOFT [Suspect]
  2. CITALOPRAM HYDROBROMIDE [Concomitant]
  3. MIRTAZAPINE [Concomitant]
  4. LOPERAMIDE [Concomitant]
  5. HYDROXYZINE [Concomitant]
  6. TRAZODONE [Concomitant]
  7. THIAMINE [Concomitant]
  8. MULTIVITAMINS/ZINC (CENTRUM) [Concomitant]
  9. ALOH/MGOH/SIMTH XTRA STRENGTH SUSP [Concomitant]

REACTIONS (1)
  - DIARRHOEA [None]
